FAERS Safety Report 9089140 (Version 1)
Quarter: 2013Q1

REPORT INFORMATION
  Report Type: Report from Study
  Country: US (occurrence: US)
  Receive Date: 20130130
  Receipt Date: 20130130
  Transmission Date: 20140127
  Serious: No
  Sender: FDA-Public Use
  Company Number: US-ABBOTT-12P-163-0972624-00

PATIENT
  Age: 62 Year
  Sex: Female

DRUGS (11)
  1. HUMIRA [Suspect]
     Indication: RHEUMATOID ARTHRITIS
     Dosage: ON 09 AUG 2012
     Dates: start: 20120809
  2. TRAZODONE [Suspect]
     Indication: INSOMNIA
  3. PENTASA [Concomitant]
     Indication: CROHN^S DISEASE
     Dosage: 4 PILLS TWICE DAILY
  4. NEXIUM [Concomitant]
     Indication: CROHN^S DISEASE
     Route: 048
  5. HYDROXYCHLOROQUINE [Concomitant]
     Indication: FIBROMYALGIA
     Dosage: 200MG DAILY
     Route: 048
  6. DIOVAN HCT [Concomitant]
     Indication: HYPERTENSION
     Dosage: 150-12.5MG EVERY DAY
     Route: 048
  7. ZOMIG [Concomitant]
     Indication: MIGRAINE
     Route: 048
  8. HYDROCODONE [Concomitant]
     Indication: ARTHRALGIA
     Dosage: 5/500MG 1 TABLET TWICE DAILY AS NEEDED
     Route: 048
  9. VITAMIN D [Concomitant]
     Indication: PRODUCT USED FOR UNKNOWN INDICATION
  10. CENTRUM SILVER [Concomitant]
     Indication: VITAMIN SUPPLEMENTATION
  11. B-12 [Concomitant]
     Indication: PRODUCT USED FOR UNKNOWN INDICATION

REACTIONS (2)
  - Renal artery occlusion [Not Recovered/Not Resolved]
  - Headache [Unknown]
